FAERS Safety Report 4509424-5 (Version None)
Quarter: 2004Q4

REPORT INFORMATION
  Report Type: 
  Country: None (occurrence: None)
  Receive Date: 20041025
  Receipt Date: 20040629
  Transmission Date: 20050328
  Serious: Yes (Hospitalization)
  Sender: FDA-Public Use
  Company Number: US-JNJFOC-20040700303

PATIENT
  Age: 52 Year
  Sex: Female

DRUGS (12)
  1. INFLIXIMAB (INFLIXIMAB, RECOMBINANT) LYOPHILIZED POWDER [Suspect]
     Indication: RHEUMATOID ARTHRITIS
     Dosage: INTRAVENOUS
     Route: 042
     Dates: start: 20010614, end: 20030812
  2. ZANAFLEX [Concomitant]
  3. MULTIVITAMIN (MULTIVITAMINS) [Concomitant]
  4. PEPCID [Concomitant]
  5. FOLIC ACID [Concomitant]
  6. ESTRADIOL [Concomitant]
  7. TIAZAC [Concomitant]
  8. ZOLOFT [Concomitant]
  9. METHOTREXATE SODIUM [Concomitant]
  10. CALCIUM [Concomitant]
  11. HYDROCODONE [Concomitant]
  12. ACETAMINOPHEN DIPHENHYDROMINE (TYLENOL PM) [Concomitant]

REACTIONS (1)
  - PNEUMONIA [None]
